FAERS Safety Report 16337787 (Version 3)
Quarter: 2019Q2

REPORT INFORMATION
  Report Type: Spontaneous
  Country: JP (occurrence: JP)
  Receive Date: 20190521
  Receipt Date: 20190620
  Transmission Date: 20190711
  Serious: Yes (Other)
  Sender: FDA-Public Use
  Company Number: JP-BRISTOL-MYERS SQUIBB COMPANY-BMS-2018-078677

PATIENT
  Age: 55 Year
  Sex: Female
  Weight: 63.5 kg

DRUGS (2)
  1. OPDIVO [Suspect]
     Active Substance: NIVOLUMAB
     Indication: MALIGNANT MELANOMA
     Dosage: 192.6 MILLIGRAM, Q2WK
     Route: 041
     Dates: start: 20180712, end: 20180712
  2. OPDIVO [Suspect]
     Active Substance: NIVOLUMAB
     Indication: PRODUCT USED FOR UNKNOWN INDICATION
     Dosage: 189.0 MILLIGRAM, Q2WK
     Route: 041
     Dates: start: 20180726, end: 20180726

REACTIONS (4)
  - Deep vein thrombosis [Not Recovered/Not Resolved]
  - Hepatic function abnormal [Recovered/Resolved]
  - Myasthenia gravis [Not Recovered/Not Resolved]
  - Rhabdomyolysis [Recovered/Resolved]

NARRATIVE: CASE EVENT DATE: 20180727
